FAERS Safety Report 24151694 (Version 2)
Quarter: 2024Q3

REPORT INFORMATION
  Report Type: Report from Study
  Country: GR (occurrence: GR)
  Receive Date: 20240730
  Receipt Date: 20240917
  Transmission Date: 20241016
  Serious: No
  Sender: SANDOZ
  Company Number: GR-SANDOZ-SDZ2024GR068106

PATIENT
  Age: 12 Year
  Sex: Female

DRUGS (2)
  1. OMNITROPE [Suspect]
     Active Substance: SOMATROPIN
     Dosage: 1.2 MG (FOR 2 DAYS)
     Route: 065
  2. OMNITROPE [Suspect]
     Active Substance: SOMATROPIN
     Indication: Product used for unknown indication
     Dosage: 1.4 MG (FOR 4 DAYS)
     Route: 065
     Dates: start: 20230915

REACTIONS (3)
  - Drug dose omission by device [Unknown]
  - Device mechanical issue [Unknown]
  - Wrong technique in device usage process [Unknown]
